FAERS Safety Report 24603902 (Version 1)
Quarter: 2024Q4

REPORT INFORMATION
  Report Type: Spontaneous
  Country: CN (occurrence: CN)
  Receive Date: 20241111
  Receipt Date: 20241111
  Transmission Date: 20250115
  Serious: Yes (Other)
  Sender: BAXTER
  Company Number: None

PATIENT
  Age: 49 Year
  Sex: Female

DRUGS (9)
  1. CYCLOPHOSPHAMIDE [Suspect]
     Active Substance: CYCLOPHOSPHAMIDE
     Indication: Malignant mediastinal neoplasm
     Dosage: 0.8 G, 3 TIMES/WEEK, DILUTED WITH 500 ML OF 0.9% SODIUM CHLORIDE (UPRIGHT SOFT BAG)
     Route: 041
     Dates: start: 20241009, end: 20241009
  2. CYCLOPHOSPHAMIDE [Suspect]
     Active Substance: CYCLOPHOSPHAMIDE
     Indication: Chemotherapy
  3. SODIUM CHLORIDE [Suspect]
     Active Substance: SODIUM CHLORIDE
     Indication: Medication dilution
     Dosage: 500 ML (UPRIGHT SOFT BAG), 3 TIMES/WEEK, STRENGTH: 0.9%, USED TO DILUTE 0.8 G OF CYCLOPHOSPHAMIDE
     Route: 041
     Dates: start: 20241009, end: 20241009
  4. SODIUM CHLORIDE [Suspect]
     Active Substance: SODIUM CHLORIDE
     Dosage: 40 ML (UPRIGHT SOFT BAG), 3 WEEKS/TIME, STRENGTH: 0.9%, USED TO DILUTE 80 MG OF DOXORUBICIN HYDROCHL
     Route: 041
     Dates: start: 20241009, end: 20241009
  5. SODIUM CHLORIDE [Suspect]
     Active Substance: SODIUM CHLORIDE
     Dosage: 500 ML (UPRIGHT SOFT BAG), 3 WEEKS/TIME, STRENGTH: 0.9%, USED TO DILUTE 16 ML OF CISPLATIN
     Route: 041
     Dates: start: 20241009, end: 20241009
  6. DOXORUBICIN HYDROCHLORIDE [Suspect]
     Active Substance: DOXORUBICIN HYDROCHLORIDE
     Indication: Malignant mediastinal neoplasm
     Dosage: 80 MG, 3 WEEKS/TIME, DILUTED WITH 40 ML OF 0.9% SODIUM CHLORIDE (UPRIGHT SOFT BAG)
     Route: 041
     Dates: start: 20241009, end: 20241009
  7. DOXORUBICIN HYDROCHLORIDE [Suspect]
     Active Substance: DOXORUBICIN HYDROCHLORIDE
     Indication: Chemotherapy
  8. CISPLATIN [Suspect]
     Active Substance: CISPLATIN
     Indication: Malignant mediastinal neoplasm
     Dosage: 16 ML, 3 WEEKS/TIME, DILUTED WITH 500 ML OF 0.9% SODIUM CHLORIDE (UPRIGHT SOFT BAG)
     Route: 041
     Dates: start: 20241009, end: 20241009
  9. CISPLATIN [Suspect]
     Active Substance: CISPLATIN
     Indication: Chemotherapy

REACTIONS (1)
  - Myelosuppression [Recovering/Resolving]

NARRATIVE: CASE EVENT DATE: 20241012
